FAERS Safety Report 8350312-4 (Version None)
Quarter: 2012Q2

REPORT INFORMATION
  Report Type: 
  Country: None (occurrence: None)
  Receive Date: 20120510
  Receipt Date: 20120430
  Transmission Date: 20120825
  Serious: Yes (Death)
  Sender: FDA-Public Use
  Company Number: US-ROCHE-800900

PATIENT
  Sex: Female
  Weight: 68.554 kg

DRUGS (10)
  1. VITAMIN B-12 [Concomitant]
     Dosage: 1000 MCG/ML
  2. HALOPERIDOL [Suspect]
     Indication: NERVOUSNESS
     Route: 048
     Dates: start: 20101228
  3. BENADRYL [Concomitant]
  4. TOVIAZ [Suspect]
     Indication: MICTURITION URGENCY
     Route: 048
     Dates: start: 20110321
  5. CALCIUM [Concomitant]
  6. IBUPROFEN [Concomitant]
     Route: 048
  7. VITAMIN D [Concomitant]
  8. BONIVA [Suspect]
     Indication: PRODUCT USED FOR UNKNOWN INDICATION
     Route: 048
  9. OMEPRAZOLE [Suspect]
     Indication: GASTRIC DISORDER
     Route: 048
     Dates: start: 20090101
  10. ASPIRIN [Concomitant]
     Route: 048

REACTIONS (1)
  - DEATH [None]
